FAERS Safety Report 20311127 (Version 1)
Quarter: 2022Q1

REPORT INFORMATION
  Report Type: Spontaneous
  Country: FR (occurrence: FR)
  Receive Date: 20220107
  Receipt Date: 20220107
  Transmission Date: 20220423
  Serious: Yes (Other)
  Sender: FDA-Public Use
  Company Number: FR-BAYER-2022A001370

PATIENT
  Age: 87 Year
  Sex: Male

DRUGS (1)
  1. ULTRAVIST [Suspect]
     Active Substance: IOPROMIDE
     Indication: Abdomen scan
     Dosage: 85 ML, ONCE
     Dates: start: 20210806, end: 20210806

REACTIONS (11)
  - Deep vein thrombosis [None]
  - Autoimmune thyroiditis [None]
  - Contrast media reaction [Not Recovered/Not Resolved]
  - Joint range of motion decreased [None]
  - Muscular weakness [None]
  - Pain in extremity [None]
  - Tendinous contracture [None]
  - Neck mass [None]
  - Injection site mass [None]
  - Tachycardia [None]
  - Feeling hot [None]

NARRATIVE: CASE EVENT DATE: 20210806
